FAERS Safety Report 8143518-0 (Version None)
Quarter: 2012Q1

REPORT INFORMATION
  Report Type: 
  Country: None (occurrence: None)
  Receive Date: 20120217
  Receipt Date: 20111020
  Transmission Date: 20120608
  Serious: Yes (Death, Hospitalization)
  Sender: FDA-Public Use
  Company Number: GB-ASTRAZENECA-2011SE56341

PATIENT
  Age: 21 Year
  Sex: Male

DRUGS (3)
  1. LYRICA [Suspect]
     Indication: ANXIETY
     Route: 048
     Dates: start: 20101018
  2. SEROQUEL XR [Suspect]
     Indication: PSYCHOTIC DISORDER
     Route: 048
     Dates: start: 20100916
  3. FLUOXETINE [Concomitant]
     Indication: DEPRESSED MOOD
     Route: 048
     Dates: start: 20101018

REACTIONS (1)
  - PANCREATITIS ACUTE [None]
